FAERS Safety Report 16693517 (Version 2)
Quarter: 2020Q2

REPORT INFORMATION
  Report Type: Spontaneous
  Country: RU (occurrence: RU)
  Receive Date: 20190812
  Receipt Date: 20200507
  Transmission Date: 20200713
  Serious: Yes (Hospitalization, Other)
  Sender: FDA-Public Use
  Company Number: RU-CELGENEUS-RUS-20190800922

PATIENT
  Age: 74 Year
  Sex: Male
  Weight: 70 kg

DRUGS (17)
  1. CARDIOMAGNYL [Concomitant]
     Active Substance: ASPIRIN\MAGNESIUM HYDROXIDE
     Indication: ANGINA PECTORIS
     Dosage: 75 MILLIGRAM
     Route: 048
     Dates: start: 1998
  2. BISOPROLOL [Concomitant]
     Active Substance: BISOPROLOL
     Indication: ANGINA PECTORIS
     Dosage: 5 MILLIGRAM
     Route: 048
     Dates: start: 1998, end: 20190724
  3. VENETOCLAX. [Concomitant]
     Active Substance: VENETOCLAX
     Dosage: 400 MILLIGRAM
     Route: 048
     Dates: start: 20171012
  4. PANCREATIN [Concomitant]
     Active Substance: PANCRELIPASE
     Indication: PANCREATITIS
     Dosage: 90 IU (INTERNATIONAL UNIT)
     Route: 048
     Dates: start: 201608
  5. STEROFUNDIN [Concomitant]
     Active Substance: CALCIUM CHLORIDE\MAGNESIUM CHLORIDE\POTASSIUM CHLORIDE\SODIUM ACETATE\SODIUM CHLORIDE
     Dosage: 1500 MILLILITER
     Route: 041
     Dates: start: 20180903, end: 20180912
  6. SIMVASTATIN. [Concomitant]
     Active Substance: SIMVASTATIN
     Indication: ARTERIOSCLEROSIS
     Dosage: 20 MILLIGRAM
     Route: 048
     Dates: start: 1998
  7. METFORMIN+GLIBENCLAMIDE [Concomitant]
     Indication: DIABETES MELLITUS
     Dosage: 2.5 + 400 MILLIGRAM
     Route: 048
     Dates: start: 2007
  8. VENETOCLAX. [Concomitant]
     Active Substance: VENETOCLAX
     Dosage: 200 MILLIGRAM
     Route: 048
     Dates: start: 20171011, end: 20171011
  9. STEROFUNDIN [Concomitant]
     Active Substance: CALCIUM CHLORIDE\MAGNESIUM CHLORIDE\POTASSIUM CHLORIDE\SODIUM ACETATE\SODIUM CHLORIDE
     Indication: PROPHYLAXIS
     Route: 041
     Dates: start: 20170926, end: 20171103
  10. AZACITIDINE. [Suspect]
     Active Substance: AZACITIDINE
     Indication: ACUTE MYELOID LEUKAEMIA
     Dosage: 75 MILLIGRAM/SQ. METER (DAYS 1-7 OF 28 DAY CYCLE )
     Route: 058
     Dates: start: 20171010
  11. VENETOCLAX. [Concomitant]
     Active Substance: VENETOCLAX
     Indication: ACUTE MYELOID LEUKAEMIA
     Dosage: 100 MILLIGRAM
     Route: 048
     Dates: start: 20171010, end: 20171010
  12. ENALAPRIL [Concomitant]
     Active Substance: ENALAPRIL
     Indication: ANGINA PECTORIS
     Dosage: 20 MILLIGRAM
     Route: 048
     Dates: start: 1998
  13. ENALAPRIL [Concomitant]
     Active Substance: ENALAPRIL
     Indication: HYPERTENSION
  14. OMEPRAZOLE. [Concomitant]
     Active Substance: OMEPRAZOLE
     Indication: GASTRITIS PROPHYLAXIS
     Dosage: 40 MILLIGRAM
     Route: 048
     Dates: start: 2008
  15. MESALAZINE [Concomitant]
     Active Substance: MESALAMINE
     Indication: COLITIS ULCERATIVE
     Dosage: 3 GRAM
     Route: 048
     Dates: start: 2006
  16. BISOPROLOL [Concomitant]
     Active Substance: BISOPROLOL
     Indication: HYPERTENSION
  17. ALLOPURINOL. [Concomitant]
     Active Substance: ALLOPURINOL
     Indication: PROPHYLAXIS
     Route: 048
     Dates: start: 20170929, end: 20171018

REACTIONS (1)
  - Atrioventricular block [Recovered/Resolved]

NARRATIVE: CASE EVENT DATE: 20190724
